FAERS Safety Report 7479133-1 (Version None)
Quarter: 2011Q2

REPORT INFORMATION
  Report Type: 
  Country: None (occurrence: None)
  Receive Date: 20110511
  Receipt Date: 20110511
  Transmission Date: 20111010
  Serious: No
  Sender: FDA-Public Use
  Company Number: None

PATIENT
  Age: 49 Year
  Sex: Female
  Weight: 52.6173 kg

DRUGS (2)
  1. ANUCORT HC [Suspect]
     Indication: HAEMORRHOIDS
     Dosage: 1 SUPPOSITORY AT NIGHT
     Dates: start: 20101228, end: 20110312
  2. HYDROCORTISONE ACETATE/LIDOCAINE HCL/ALOE [Suspect]
     Indication: HAEMORRHOIDS
     Dosage: 1 TUBE PER DAY APPLIED 2-3 X A DAY
     Route: 061
     Dates: start: 20110216, end: 20110312

REACTIONS (6)
  - PAIN [None]
  - PRURITUS GENERALISED [None]
  - VULVOVAGINAL PRURITUS [None]
  - HAEMORRHOIDS [None]
  - PAIN IN EXTREMITY [None]
  - RASH [None]
